FAERS Safety Report 16805431 (Version 1)
Quarter: 2019Q3

REPORT INFORMATION
  Report Type: Not Available
  Country: DE (occurrence: DE)
  Receive Date: 20190913
  Receipt Date: 20190913
  Transmission Date: 20191005
  Serious: Yes (Life-Threatening, Hospitalization, Other)
  Sender: FDA-Public Use
  Company Number: DE-SYNTHON BV-IN51PV19_49723

PATIENT
  Sex: Male

DRUGS (1)
  1. TAMSULOSIN [Suspect]
     Active Substance: TAMSULOSIN
     Dosage: 0.4 MILLIGRAM, 1/1 TOTAL (ABENDS NUR 1 EINGENOMMEN)
     Route: 048
     Dates: start: 20180925

REACTIONS (1)
  - Ileus paralytic [Recovered/Resolved with Sequelae]

NARRATIVE: CASE EVENT DATE: 20180926
